FAERS Safety Report 4801996-6 (Version None)
Quarter: 2005Q4

REPORT INFORMATION
  Report Type: 
  Country: None (occurrence: None)
  Receive Date: 20051012
  Receipt Date: 20051004
  Transmission Date: 20060501
  Serious: Yes (Other)
  Sender: FDA-Public Use
  Company Number: 2005-09-0270

PATIENT
  Age: 44 Year
  Sex: Male
  Weight: 79.3795 kg

DRUGS (10)
  1. PEG-INTRON [Suspect]
     Indication: HEPATITIS B
     Dosage: 50 MCG SUBCUTANEOUS
     Route: 058
     Dates: start: 20050621, end: 20050801
  2. PEG-INTRON [Suspect]
     Indication: HEPATITIS C
     Dosage: 50 MCG SUBCUTANEOUS
     Route: 058
     Dates: start: 20050621, end: 20050801
  3. REBETOL [Suspect]
     Indication: HEPATITIS B
     Dosage: 600 MG ORAL
     Route: 048
     Dates: start: 20050621, end: 20050801
  4. REBETOL [Suspect]
     Indication: HEPATITIS C
     Dosage: 600 MG ORAL
     Route: 048
     Dates: start: 20050621, end: 20050801
  5. CLONIDINE HCL [Concomitant]
  6. LEXAPRO [Concomitant]
  7. MORPHINE [Concomitant]
  8. NEXIUM [Concomitant]
  9. XANAX [Concomitant]
  10. KLONOPIN [Concomitant]

REACTIONS (1)
  - CEREBROVASCULAR ACCIDENT [None]
